FAERS Safety Report 4974160-8 (Version None)
Quarter: 2006Q2

REPORT INFORMATION
  Report Type: 
  Country: None (occurrence: None)
  Receive Date: 20060417
  Receipt Date: 20060313
  Transmission Date: 20061013
  Serious: Yes (Hospitalization)
  Sender: FDA-Public Use
  Company Number: US-MERCK-0603USA02284

PATIENT
  Age: 77 Year
  Sex: Female
  Weight: 64 kg

DRUGS (8)
  1. VIOXX [Suspect]
     Indication: OSTEOARTHRITIS
     Route: 048
     Dates: start: 20000927, end: 20040401
  2. VIOXX [Suspect]
     Indication: ARTHRALGIA
     Route: 048
     Dates: start: 20000927, end: 20040401
  3. ISOSORBIDE [Concomitant]
     Route: 065
  4. ZOLOFT [Concomitant]
     Route: 065
  5. EVISTA [Concomitant]
     Route: 065
  6. TRENTAL [Concomitant]
     Route: 065
  7. CELEXA [Concomitant]
     Route: 065
  8. DARVOCET [Concomitant]
     Route: 065

REACTIONS (14)
  - ATROPHIC VULVOVAGINITIS [None]
  - CAROTID ARTERY STENOSIS [None]
  - CHEST PAIN [None]
  - COUGH [None]
  - DELIRIUM [None]
  - DEMENTIA ALZHEIMER'S TYPE [None]
  - DIZZINESS [None]
  - EMBOLIC CEREBRAL INFARCTION [None]
  - FALL [None]
  - HYPOTENSION [None]
  - JOINT INJURY [None]
  - RESPIRATORY FAILURE [None]
  - VASCULAR INSUFFICIENCY [None]
  - VOMITING [None]
